FAERS Safety Report 5288988-0 (Version None)
Quarter: 2007Q1

REPORT INFORMATION
  Report Type: 
  Country: None (occurrence: None)
  Receive Date: 20070118
  Receipt Date: 20061128
  Transmission Date: 20070707
  Serious: Yes (Other)
  Sender: FDA-Public Use
  Company Number: HQWYE976301DEC06

PATIENT
  Age: 32 Year
  Weight: 97.61 kg

DRUGS (1)
  1. ADVIL PM [Suspect]
     Indication: INSOMNIA
     Dosage: 2 CAPLETS ONE TIME, ORAL
     Route: 048
     Dates: start: 20061127, end: 20061127

REACTIONS (3)
  - ANXIETY [None]
  - NERVOUSNESS [None]
  - PALPITATIONS [None]
